FAERS Safety Report 14106572 (Version 1)
Quarter: 2017Q4

REPORT INFORMATION
  Report Type: Spontaneous
  Country: TR (occurrence: TR)
  Receive Date: 20171019
  Receipt Date: 20171019
  Transmission Date: 20180321
  Serious: Yes (Death, Other)
  Sender: FDA-Public Use
  Company Number: PHHY2017TR153430

PATIENT
  Age: 38 Year
  Sex: Male
  Weight: 65 kg

DRUGS (2)
  1. ILARIS [Suspect]
     Active Substance: CANAKINUMAB
     Indication: FAMILIAL MEDITERRANEAN FEVER
     Dosage: 150 MG, UNK
     Route: 058
     Dates: start: 201701
  2. ILARIS [Suspect]
     Active Substance: CANAKINUMAB
     Indication: PROTEINURIA

REACTIONS (4)
  - Chronic kidney disease [Fatal]
  - Product use in unapproved indication [Unknown]
  - Transplant rejection [Unknown]
  - Transplant failure [Unknown]

NARRATIVE: CASE EVENT DATE: 201701
